FAERS Safety Report 5256544-6 (Version None)
Quarter: 2007Q1

REPORT INFORMATION
  Report Type: 
  Country: None (occurrence: None)
  Receive Date: 20061219
  Receipt Date: 20061107
  Transmission Date: 20070707
  Serious: No
  Sender: FDA-Public Use
  Company Number: 2006US002534

PATIENT
  Age: 53 Year
  Sex: Female

DRUGS (8)
  1. VESICARE [Suspect]
     Indication: HYPERTONIC BLADDER
     Dosage: 5 MG, ORAL
     Route: 048
     Dates: start: 20061003, end: 20061102
  2. VYTORIN [Suspect]
     Dates: start: 20061003
  3. ZOLOFT [Concomitant]
  4. NEXIUM [Concomitant]
  5. KEFLEX [Concomitant]
  6. ACTONEL [Concomitant]
  7. LODINE [Concomitant]
  8. LYRICA [Concomitant]

REACTIONS (3)
  - PRURITUS [None]
  - RASH [None]
  - URTICARIA [None]
